FAERS Safety Report 5628510-X (Version None)
Quarter: 2008Q1

REPORT INFORMATION
  Report Type: 
  Country: None (occurrence: None)
  Receive Date: 20080214
  Receipt Date: 20080214
  Transmission Date: 20080703
  Serious: Yes (Life-Threatening, Hospitalization)
  Sender: FDA-Public Use
  Company Number: None

PATIENT
  Age: 56 Year
  Sex: Male

DRUGS (3)
  1. MOXIFLOXACIN HCL [Suspect]
     Indication: UPPER RESPIRATORY TRACT INFECTION
     Dosage: 400MG ONCE IV
     Route: 042
     Dates: start: 20080128, end: 20080128
  2. AZITHROMYCIN [Suspect]
     Indication: INFECTION
     Dosage: 500MG ONCE IV
     Route: 042
     Dates: start: 20080128, end: 20080128
  3. AZITHROMYCIN [Suspect]
     Indication: RESPIRATORY DISORDER
     Dosage: 500MG ONCE IV
     Route: 042
     Dates: start: 20080128, end: 20080128

REACTIONS (4)
  - CARDIAC ARREST [None]
  - CARDIAC ENZYMES INCREASED [None]
  - ELECTROCARDIOGRAM ST SEGMENT DEPRESSION [None]
  - TORSADE DE POINTES [None]
